FAERS Safety Report 15366512 (Version 2)
Quarter: 2018Q4

REPORT INFORMATION
  Report Type: Spontaneous
  Country: US (occurrence: US)
  Receive Date: 20180910
  Receipt Date: 20181205
  Transmission Date: 20190204
  Serious: Yes (Other)
  Sender: FDA-Public Use
  Company Number: US-SA-2018SA251212

PATIENT
  Age: 46 Year
  Sex: Female
  Weight: 88 kg

DRUGS (4)
  1. TAXOTERE [Suspect]
     Active Substance: DOCETAXEL
     Indication: BREAST CANCER FEMALE
     Dosage: 75 MG
     Route: 042
     Dates: start: 20081117, end: 20081117
  2. NEOSAR [Concomitant]
     Active Substance: CYCLOPHOSPHAMIDE
  3. TAXOTERE [Suspect]
     Active Substance: DOCETAXEL
     Dosage: 75 MG, Q3W
     Route: 042
     Dates: start: 20090309, end: 20090309
  4. DAUNORUBICIN [Concomitant]
     Active Substance: DAUNORUBICIN

REACTIONS (2)
  - Alopecia [Recovering/Resolving]
  - Psychological trauma [Unknown]

NARRATIVE: CASE EVENT DATE: 200909
